FAERS Safety Report 4305201-9 (Version None)
Quarter: 2004Q1

REPORT INFORMATION
  Report Type: 
  Country: None (occurrence: None)
  Receive Date: 20040226
  Receipt Date: 20030820
  Transmission Date: 20041129
  Serious: Yes (Hospitalization)
  Sender: FDA-Public Use
  Company Number: DE-GLAXOSMITHKLINE-D0041735A

PATIENT
  Sex: Female

DRUGS (3)
  1. LAMICTAL [Suspect]
     Indication: EPILEPSY
     Route: 048
  2. VALPROIC ACID [Concomitant]
     Indication: EPILEPSY
     Route: 048
  3. SABRIL [Concomitant]
     Route: 048

REACTIONS (12)
  - AGITATION [None]
  - CONVULSION [None]
  - CRYING [None]
  - FLAT FEET [None]
  - HYPERTONIA [None]
  - IRRITABILITY [None]
  - JOINT CONTRACTURE [None]
  - KYPHOSCOLIOSIS [None]
  - MOTOR DYSFUNCTION [None]
  - MUSCLE DISORDER [None]
  - RESTLESSNESS [None]
  - SLEEP DISORDER [None]
